FAERS Safety Report 15279598 (Version 1)
Quarter: 2018Q3

REPORT INFORMATION
  Report Type: Spontaneous
  Country: GB (occurrence: GB)
  Receive Date: 20180815
  Receipt Date: 20180815
  Transmission Date: 20181010
  Serious: Yes (Other)
  Sender: FDA-Public Use
  Company Number: GB-ROCHE-2169090

PATIENT
  Age: 70 Year
  Sex: Male
  Weight: 95 kg

DRUGS (2)
  1. ATEZOLIZUMAB. [Suspect]
     Active Substance: ATEZOLIZUMAB
     Indication: RENAL CANCER
     Dosage: RESTARTED AT A SLOWER RATE
     Route: 042
  2. ATEZOLIZUMAB. [Suspect]
     Active Substance: ATEZOLIZUMAB
     Indication: RENAL CANCER
     Dosage: 1200MG
     Route: 042
     Dates: start: 20180711, end: 20180711

REACTIONS (3)
  - Hypersensitivity [Recovered/Resolved]
  - Back pain [Recovered/Resolved]
  - Muscle spasms [Unknown]

NARRATIVE: CASE EVENT DATE: 20180711
